FAERS Safety Report 22326197 (Version 11)
Quarter: 2023Q4

REPORT INFORMATION
  Report Type: Report from Study
  Country: CN (occurrence: None)
  Receive Date: 20230516
  Receipt Date: 20231018
  Transmission Date: 20240110
  Serious: Yes (Hospitalization)
  Sender: FDA-Public Use
  Company Number: CN-ROCHE-3345805

PATIENT
  Age: 64 Year
  Sex: Female
  Weight: 56.5 kg

DRUGS (34)
  1. PERTUZUMAB\TRASTUZUMAB [Suspect]
     Active Substance: PERTUZUMAB\TRASTUZUMAB
     Indication: Breast cancer metastatic
     Dosage: 1200MG AND 600 MG?ON 12/APR/2023, SHE RECEIVED THE MOST RECENT DOSE OF STUDY DRUG PRIOR TO AE/SAE. D
     Route: 058
     Dates: start: 20230412
  2. DOCETAXEL [Suspect]
     Active Substance: DOCETAXEL
     Indication: Breast cancer metastatic
     Dosage: ON 12/APR/2023, SHE RECEIVED THE MOST RECENT DOSE OF STUDY DRUG PRIOR TO AE/SAE. DOSE LAST STUDY DRU
     Route: 042
     Dates: start: 20230412
  3. DEXAMETHASONE ACETATE [Concomitant]
     Active Substance: DEXAMETHASONE ACETATE
     Indication: Hypersensitivity
     Route: 048
     Dates: start: 20230511, end: 20230512
  4. DEXAMETHASONE ACETATE [Concomitant]
     Active Substance: DEXAMETHASONE ACETATE
     Route: 048
     Dates: start: 20230705, end: 20230706
  5. DEXAMETHASONE ACETATE [Concomitant]
     Active Substance: DEXAMETHASONE ACETATE
     Route: 048
     Dates: start: 20230727, end: 20230728
  6. DEXAMETHASONE ACETATE [Concomitant]
     Active Substance: DEXAMETHASONE ACETATE
     Route: 048
     Dates: start: 20230411, end: 20230412
  7. DEXAMETHASONE ACETATE [Concomitant]
     Active Substance: DEXAMETHASONE ACETATE
     Route: 048
     Dates: start: 20230601, end: 20230602
  8. LEVOTHYROXINE SODIUM [Concomitant]
     Active Substance: LEVOTHYROXINE SODIUM
     Route: 048
     Dates: start: 201612
  9. VITAMIN B6 [Concomitant]
     Active Substance: PYRIDOXINE HYDROCHLORIDE
     Indication: Vitamin B6 deficiency
     Route: 042
     Dates: start: 20230427, end: 20230506
  10. POTASSIUM CHLORIDE [Concomitant]
     Active Substance: POTASSIUM CHLORIDE
     Indication: Hypokalaemia
     Route: 042
     Dates: start: 20230427, end: 20230506
  11. COMPOUND AMINO ACID INJECTION (3AA) [Concomitant]
     Route: 042
     Dates: start: 20230427, end: 20230507
  12. RANITIDINE HYDROCHLORIDE [Concomitant]
     Active Substance: RANITIDINE HYDROCHLORIDE
     Indication: Peptic ulcer haemorrhage
     Route: 042
     Dates: start: 20230427, end: 20230506
  13. ETHAMSYLATE [Concomitant]
     Active Substance: ETHAMSYLATE
     Dosage: 24 AMPULE
     Route: 042
     Dates: start: 20230427, end: 20230507
  14. SUCRATE [Concomitant]
     Indication: Gastric ulcer
     Dosage: 1 GRAIN
     Route: 048
     Dates: start: 20230427, end: 20230506
  15. SUCRATE [Concomitant]
     Indication: Duodenal ulcer
  16. OMEPRAZOLE SODIUM [Concomitant]
     Active Substance: OMEPRAZOLE SODIUM
     Indication: Gastrooesophageal reflux disease
     Dosage: 12 AMPULE
     Route: 042
     Dates: start: 20230427, end: 20230506
  17. OMEPRAZOLE SODIUM [Concomitant]
     Active Substance: OMEPRAZOLE SODIUM
     Indication: Duodenal ulcer
  18. OMEPRAZOLE SODIUM [Concomitant]
     Active Substance: OMEPRAZOLE SODIUM
     Indication: Gastric ulcer
  19. DIPHENHYDRAMINE HYDROCHLORIDE [Concomitant]
     Active Substance: DIPHENHYDRAMINE HYDROCHLORIDE
     Dosage: 2 AMPULES
     Route: 042
     Dates: start: 20230427, end: 20230506
  20. VITAMIN C [Concomitant]
     Active Substance: ASCORBIC ACID
     Dosage: 36 AMPULE
     Route: 042
     Dates: start: 20230427, end: 20230506
  21. VITAMIN K1 [Concomitant]
     Active Substance: PHYTONADIONE
     Dosage: 12 AMPULES
     Route: 042
     Dates: start: 20230427, end: 20230506
  22. CALCIUM GLUCONATE [Concomitant]
     Active Substance: CALCIUM GLUCONATE
     Indication: Hypocalcaemia
     Route: 042
     Dates: start: 20230427, end: 20230506
  23. OCTREOTIDE ACETATE [Concomitant]
     Active Substance: OCTREOTIDE ACETATE
     Dosage: 18 AMPULE
     Route: 042
     Dates: start: 20230427, end: 20230506
  24. TROPISETRON HYDROCHLORIDE [Concomitant]
     Active Substance: TROPISETRON HYDROCHLORIDE
     Indication: Nausea
     Route: 042
     Dates: start: 20230412, end: 20230412
  25. TROPISETRON HYDROCHLORIDE [Concomitant]
     Active Substance: TROPISETRON HYDROCHLORIDE
     Route: 042
  26. TROPISETRON HYDROCHLORIDE [Concomitant]
     Active Substance: TROPISETRON HYDROCHLORIDE
     Route: 042
     Dates: start: 20230512, end: 20230512
  27. TROPISETRON HYDROCHLORIDE [Concomitant]
     Active Substance: TROPISETRON HYDROCHLORIDE
     Route: 042
     Dates: start: 20230602, end: 20230602
  28. TROPISETRON HYDROCHLORIDE [Concomitant]
     Active Substance: TROPISETRON HYDROCHLORIDE
     Route: 042
     Dates: start: 20230706, end: 20230706
  29. DENOSUMAB [Concomitant]
     Active Substance: DENOSUMAB
     Indication: Neoplasm
     Route: 042
     Dates: start: 20230512, end: 20230512
  30. DENOSUMAB [Concomitant]
     Active Substance: DENOSUMAB
     Indication: Metastases to bone
  31. DENOSUMAB [Concomitant]
     Active Substance: DENOSUMAB
     Indication: Plasma cell myeloma
  32. CALCITRIOL [Concomitant]
     Active Substance: CALCITRIOL
     Route: 048
     Dates: start: 20230511
  33. IBUPROFEN [Concomitant]
     Active Substance: IBUPROFEN
     Indication: Analgesic therapy
     Dosage: 1 CAPSULE
     Route: 048
     Dates: start: 20230518, end: 20230518
  34. COMPOUND FERROUS SULFATE AND FOLIC ACID [Concomitant]
     Indication: Iron deficiency anaemia
     Route: 048
     Dates: start: 20230625

REACTIONS (2)
  - Anaemia [Recovered/Resolved]
  - Upper gastrointestinal haemorrhage [Recovered/Resolved]

NARRATIVE: CASE EVENT DATE: 20230427
